FAERS Safety Report 6457867-5 (Version None)
Quarter: 2009Q4

REPORT INFORMATION
  Report Type: 
  Country: None (occurrence: None)
  Receive Date: 20091125
  Receipt Date: 20091119
  Transmission Date: 20100525
  Serious: Yes (Other)
  Sender: FDA-Public Use
  Company Number: US-GENENTECH-293840

PATIENT
  Sex: Male
  Weight: 40 kg

DRUGS (2)
  1. NUTROPIN [Suspect]
     Indication: GROWTH HORMONE DEFICIENCY
     Dosage: 2.2 MG, 7/WEEK
     Route: 058
     Dates: start: 20090729
  2. NUTROPIN [Suspect]
     Dosage: 1 MG, QD

REACTIONS (4)
  - HYPOAESTHESIA [None]
  - NERVE COMPRESSION [None]
  - PAIN IN EXTREMITY [None]
  - PARAESTHESIA [None]
